FAERS Safety Report 5781695-7 (Version None)
Quarter: 2008Q2

REPORT INFORMATION
  Report Type: 
  Country: None (occurrence: None)
  Receive Date: 20080623
  Receipt Date: 20070606
  Transmission Date: 20081010
  Serious: No
  Sender: FDA-Public Use
  Company Number: US-ASTRAZENECA-2007UW13687

PATIENT
  Age: 45 Year
  Sex: Female
  Weight: 52.2 kg

DRUGS (2)
  1. RHINOCORT [Suspect]
     Indication: SINUS HEADACHE
     Route: 045
     Dates: start: 20070604
  2. RHINOCORT [Suspect]
     Indication: ILL-DEFINED DISORDER
     Route: 045
     Dates: start: 20070604

REACTIONS (2)
  - RESPIRATORY TRACT INFECTION [None]
  - SWELLING [None]
